FAERS Safety Report 4337160-7 (Version None)
Quarter: 2004Q1

REPORT INFORMATION
  Report Type: 
  Country: None (occurrence: None)
  Receive Date: 20040329
  Receipt Date: 20040217
  Transmission Date: 20041129
  Serious: No
  Sender: FDA-Public Use
  Company Number: USA040259625

PATIENT
  Age: 15 Year
  Sex: Male
  Weight: 64 kg

DRUGS (2)
  1. STRATTERA [Suspect]
     Indication: DISTURBANCE IN ATTENTION
     Dosage: 80 MG IN THE EVENING
     Dates: start: 20031201
  2. CONCERTA [Concomitant]

REACTIONS (5)
  - DISTURBANCE IN ATTENTION [None]
  - MOOD SWINGS [None]
  - PERSONALITY CHANGE [None]
  - SOMNOLENCE [None]
  - THINKING ABNORMAL [None]
